FAERS Safety Report 5811309-9 (Version None)
Quarter: 2008Q3

REPORT INFORMATION
  Report Type: 
  Country: None (occurrence: None)
  Receive Date: 20080710
  Receipt Date: 20080625
  Transmission Date: 20090109
  Serious: Yes (Congenital Anomaly, Other)
  Sender: FDA-Public Use
  Company Number: S08-FRA-00223-02

PATIENT

DRUGS (2)
  1. SEROPLEX (ESCITALOPRAM) [Suspect]
     Dosage: 20 MG QD TRANSPLACENTAL
     Route: 064
     Dates: start: 20071210
  2. XANAX [Concomitant]

REACTIONS (3)
  - ABORTION INDUCED [None]
  - MATERNAL DRUGS AFFECTING FOETUS [None]
  - TRISOMY 21 [None]
